FAERS Safety Report 25374296 (Version 1)
Quarter: 2025Q2

REPORT INFORMATION
  Report Type: Spontaneous
  Country: US (occurrence: US)
  Receive Date: 20250529
  Receipt Date: 20250529
  Transmission Date: 20250717
  Serious: Yes (Hospitalization)
  Sender: ROCHE
  Company Number: US-ROCHE-10000290836

PATIENT
  Age: 53 Year
  Sex: Female
  Weight: 82.1 kg

DRUGS (7)
  1. XOLAIR PFS [Suspect]
     Active Substance: OMALIZUMAB
     Indication: Hypersensitivity
     Route: 058
  2. XOLAIR PFS [Suspect]
     Active Substance: OMALIZUMAB
     Indication: Asthma
  3. XOLAIR PFS [Suspect]
     Active Substance: OMALIZUMAB
     Indication: Sinusitis
  4. XOLAIR PFS [Suspect]
     Active Substance: OMALIZUMAB
     Indication: Hypersensitivity
     Route: 058
  5. XOLAIR PFS [Suspect]
     Active Substance: OMALIZUMAB
     Indication: Asthma
  6. XOLAIR PFS [Suspect]
     Active Substance: OMALIZUMAB
     Indication: Sinusitis
  7. Eliquis (apixabana) [Concomitant]

REACTIONS (5)
  - Product dose omission issue [Unknown]
  - Hypersensitivity [Unknown]
  - Asthma [Unknown]
  - Sinus disorder [Unknown]
  - Product packaging issue [Unknown]

NARRATIVE: CASE EVENT DATE: 20250516
